FAERS Safety Report 13122704 (Version 6)
Quarter: 2017Q2

REPORT INFORMATION
  Report Type: Report from Study
  Country: JP (occurrence: JP)
  Receive Date: 20170117
  Receipt Date: 20170512
  Transmission Date: 20170830
  Serious: Yes (Hospitalization)
  Sender: FDA-Public Use
  Company Number: JP-JT-EVA201700048KERYXP-001

PATIENT
  Age: 68 Year
  Sex: Male
  Weight: 58 kg

DRUGS (12)
  1. NESP [Concomitant]
     Active Substance: DARBEPOETIN ALFA
     Dosage: 20 MICRO-G, UNK
     Route: 042
  2. SODIUM RABEPRAZOLE [Concomitant]
     Active Substance: RABEPRAZOLE SODIUM
     Indication: HYPERCHLORHYDRIA
     Dosage: 10 MG, QD
     Route: 048
  3. RIONA [Suspect]
     Active Substance: FERRIC CITRATE ANHYDROUS
     Indication: HYPERPHOSPHATAEMIA
     Dosage: 1500 MG, QD
     Route: 048
     Dates: start: 20160913
  4. AMEZINIUM METILSULFATE [Concomitant]
     Active Substance: AMEZINIUM METILSULFATE
     Dosage: 10 MG, QD
     Route: 048
     Dates: start: 20160802
  5. SAXAGLIPTIN                        /05722202/ [Concomitant]
     Active Substance: SAXAGLIPTIN HYDROCHLORIDE
     Dosage: 5 MG, QD
     Route: 048
     Dates: start: 20160913
  6. NESP [Concomitant]
     Active Substance: DARBEPOETIN ALFA
     Indication: NEPHROGENIC ANAEMIA
     Dosage: 60 MICRO-G, UNK
     Route: 042
  7. ETHYL ICOSAPENTATE [Concomitant]
     Active Substance: ICOSAPENT ETHYL
     Dosage: 1800 MG, QD
     Route: 048
  8. NALFURAFINE HYDROCHLORIDE [Concomitant]
     Active Substance: NALFURAFINE HYDROCHLORIDE
     Dosage: 2.5 MICRO-G, QD
     Route: 048
     Dates: start: 20160610
  9. LUBIPROSTONE [Concomitant]
     Active Substance: LUBIPROSTONE
     Dosage: 48 MICRO-G, QD
     Route: 048
     Dates: start: 20160621
  10. CALCITRIOL. [Concomitant]
     Active Substance: CALCITRIOL
     Indication: HYPERPARATHYROIDISM SECONDARY
     Dosage: 2.5 MICRO-G, QD
     Route: 042
  11. METHYCOBAL [Concomitant]
     Active Substance: METHYLCOBALAMIN
     Dosage: 1000 MICRO-G, QD
     Route: 048
  12. DROXIDOPA [Concomitant]
     Active Substance: DROXIDOPA
     Dosage: 100 MG, QD
     Route: 048
     Dates: start: 20160802

REACTIONS (2)
  - Haemoglobin increased [Recovered/Resolved]
  - Shunt occlusion [Recovered/Resolved]

NARRATIVE: CASE EVENT DATE: 20161213
